FAERS Safety Report 9422531 (Version 1)
Quarter: 2013Q3

REPORT INFORMATION
  Report Type: Spontaneous
  Country: US (occurrence: US)
  Receive Date: 20130715
  Receipt Date: 20130715
  Transmission Date: 20140515
  Serious: Yes (Hospitalization)
  Sender: FDA-Public Use
  Company Number: 2013036837

PATIENT
  Age: 53 Year
  Sex: Female

DRUGS (1)
  1. ZEMAIRA [Suspect]

REACTIONS (1)
  - Influenza [None]
